FAERS Safety Report 19067210 (Version 1)
Quarter: 2021Q1

REPORT INFORMATION
  Report Type: Spontaneous
  Country: US (occurrence: US)
  Receive Date: 20210329
  Receipt Date: 20210329
  Transmission Date: 20210420
  Serious: No
  Sender: FDA-Public Use
  Company Number: US-BAUSCH-BL-2021-010298

PATIENT
  Sex: Female

DRUGS (2)
  1. SILIQ [Suspect]
     Active Substance: BRODALUMAB
     Indication: PSORIATIC ARTHROPATHY
  2. SILIQ [Suspect]
     Active Substance: BRODALUMAB
     Indication: PSORIASIS
     Route: 065

REACTIONS (3)
  - Symptom recurrence [Not Recovered/Not Resolved]
  - Arthralgia [Not Recovered/Not Resolved]
  - Therapy interrupted [Unknown]
